FAERS Safety Report 17539852 (Version 3)
Quarter: 2020Q3

REPORT INFORMATION
  Report Type: Spontaneous
  Country: US (occurrence: US)
  Receive Date: 20200313
  Receipt Date: 20200821
  Transmission Date: 20201102
  Serious: Yes (Death, Other)
  Sender: FDA-Public Use
  Company Number: US-ASTRAZENECA-2020SE36245

PATIENT
  Age: 27505 Day
  Sex: Male
  Weight: 102.1 kg

DRUGS (79)
  1. SYMBICORT [Concomitant]
     Active Substance: BUDESONIDE\FORMOTEROL FUMARATE DIHYDRATE
     Dosage: 2 PUFFS BY TWICE DAILY
     Route: 048
     Dates: start: 20180514
  2. ALBUTEROL. [Concomitant]
     Active Substance: ALBUTEROL
     Dosage: 1 VIAL VIA NEBULIZER FOUR TIMES DAILY
     Dates: start: 20190118
  3. OXYCODONE/ACETAMINOPHEN [Concomitant]
     Active Substance: ACETAMINOPHEN\OXYCODONE HYDROCHLORIDE
     Route: 048
     Dates: start: 20180717
  4. MECLIZINE [Concomitant]
     Active Substance: MECLIZINE HYDROCHLORIDE
     Route: 048
     Dates: start: 20190730
  5. IRON [Concomitant]
     Active Substance: IRON
  6. VERAPAMIL [Concomitant]
     Active Substance: VERAPAMIL HYDROCHLORIDE
  7. PROAIR HFA [Concomitant]
     Active Substance: ALBUTEROL SULFATE
  8. IPRATROPIUM [Concomitant]
     Active Substance: IPRATROPIUM
  9. CORICIDIN [Concomitant]
  10. CEFTIN [Concomitant]
     Active Substance: CEFUROXIME AXETIL
  11. FLOMAX [Concomitant]
     Active Substance: TAMSULOSIN HYDROCHLORIDE
  12. PRILOSEC [Suspect]
     Active Substance: OMEPRAZOLE MAGNESIUM
     Indication: GASTROOESOPHAGEAL REFLUX DISEASE
     Dosage: GENERIC20.0MG UNKNOWN
     Route: 048
     Dates: start: 20170418
  13. PROTONIX [Suspect]
     Active Substance: PANTOPRAZOLE SODIUM
     Indication: GASTROOESOPHAGEAL REFLUX DISEASE
     Route: 065
     Dates: start: 2017, end: 2019
  14. PROTONIX [Suspect]
     Active Substance: PANTOPRAZOLE SODIUM
     Indication: GASTROOESOPHAGEAL REFLUX DISEASE
     Dosage: GENERIC
     Route: 048
     Dates: start: 20180809
  15. LANSOPRAZOLE. [Suspect]
     Active Substance: LANSOPRAZOLE
     Indication: GASTROOESOPHAGEAL REFLUX DISEASE
     Route: 065
     Dates: start: 201905, end: 2020
  16. LEVOTHYROXINE. [Concomitant]
     Active Substance: LEVOTHYROXINE
     Route: 048
     Dates: start: 20180717
  17. IPRATROPI/ALB [Concomitant]
     Route: 048
     Dates: start: 20180717
  18. LIDOCAINE/PRILOCAINE [Concomitant]
     Active Substance: LIDOCAINE\PRILOCAINE
     Route: 048
     Dates: start: 20190530
  19. FINASTERIDE. [Concomitant]
     Active Substance: FINASTERIDE
     Route: 048
     Dates: start: 20190711
  20. METOPROLOL TARTRATE. [Concomitant]
     Active Substance: METOPROLOL TARTRATE
     Route: 048
     Dates: start: 20190711
  21. LORAZEPAM. [Concomitant]
     Active Substance: LORAZEPAM
     Route: 048
     Dates: start: 20191108
  22. ASPIRIN. [Concomitant]
     Active Substance: ASPIRIN
  23. CEPHALEXIN. [Concomitant]
     Active Substance: CEPHALEXIN
  24. PERI?COLACE [Concomitant]
     Active Substance: CASANTHRANOL\DOCUSATE SODIUM
  25. VANCOMYCIN [Concomitant]
     Active Substance: VANCOMYCIN
  26. FLAGYL [Concomitant]
     Active Substance: METRONIDAZOLE\METRONIDAZOLE HYDROCHLORIDE
  27. PROTONIX [Suspect]
     Active Substance: PANTOPRAZOLE SODIUM
     Indication: GASTROOESOPHAGEAL REFLUX DISEASE
     Dosage: GENERIC
     Route: 048
     Dates: start: 20190118
  28. ONDANSETRON [Concomitant]
     Active Substance: ONDANSETRON
     Route: 048
     Dates: start: 20190423
  29. DEXAMETHASONE. [Concomitant]
     Active Substance: DEXAMETHASONE
     Route: 048
     Dates: start: 20190423
  30. PROCHLORPERAZINE. [Concomitant]
     Active Substance: PROCHLORPERAZINE
     Route: 048
     Dates: start: 20190430
  31. ACYCLOVIR. [Concomitant]
     Active Substance: ACYCLOVIR
     Route: 048
     Dates: start: 20190524
  32. LANCETS [Concomitant]
     Active Substance: DEVICE
     Dosage: 33 G 100 S TWICE DAILY
     Dates: start: 20190715
  33. PROMETHAZINE [Concomitant]
     Active Substance: PROMETHAZINE HYDROCHLORIDE
     Route: 048
     Dates: start: 20190916
  34. CEFPODOXIME [Concomitant]
     Active Substance: CEFPODOXIME
  35. DALIRESP [Concomitant]
     Active Substance: ROFLUMILAST
  36. RANITIDINE. [Concomitant]
     Active Substance: RANITIDINE
  37. OSELTAMIVIR [Concomitant]
     Active Substance: OSELTAMIVIR
  38. FERROUS SULFATE. [Concomitant]
     Active Substance: FERROUS SULFATE
  39. VITAMIN B12 [Concomitant]
     Active Substance: CYANOCOBALAMIN
  40. PROTONIX [Suspect]
     Active Substance: PANTOPRAZOLE SODIUM
     Indication: GASTROOESOPHAGEAL REFLUX DISEASE
     Dosage: GENERIC
     Route: 065
     Dates: start: 201804, end: 201910
  41. PREDNISONE. [Concomitant]
     Active Substance: PREDNISONE
     Route: 048
     Dates: start: 20180518
  42. METOPROLOL SUCCINATE. [Concomitant]
     Active Substance: METOPROLOL SUCCINATE
     Route: 048
     Dates: start: 20180518
  43. FLUTICASONE. [Concomitant]
     Active Substance: FLUTICASONE
     Dosage: 50 MCG TWICE DAILY
     Route: 045
     Dates: start: 20180717
  44. MORPHINE [Concomitant]
     Active Substance: MORPHINE
     Route: 048
     Dates: start: 20190508
  45. DIPHENHYDRAMINE/LIDOCAINE/GERI?LAN [Concomitant]
     Dosage: 10 ML DAILY
     Dates: start: 20190508
  46. LEVOFLOXACIN. [Concomitant]
     Active Substance: LEVOFLOXACIN
     Route: 048
     Dates: start: 20190519
  47. CALCIUM [Concomitant]
     Active Substance: CALCIUM
  48. GUAIFENESIN. [Concomitant]
     Active Substance: GUAIFENESIN
  49. PRILOSEC [Suspect]
     Active Substance: OMEPRAZOLE MAGNESIUM
     Indication: GASTROOESOPHAGEAL REFLUX DISEASE
     Route: 048
     Dates: start: 2017, end: 2019
  50. LANSOPRAZOLE. [Suspect]
     Active Substance: LANSOPRAZOLE
     Indication: GASTROOESOPHAGEAL REFLUX DISEASE
     Route: 048
     Dates: start: 20190508
  51. MONTELUKAST [Concomitant]
     Active Substance: MONTELUKAST SODIUM
     Route: 048
     Dates: start: 20180717
  52. VALACYCLOVIR [Concomitant]
     Active Substance: VALACYCLOVIR HYDROCHLORIDE
     Route: 048
     Dates: start: 20190329
  53. BUDESONIDE. [Concomitant]
     Active Substance: BUDESONIDE
     Dosage: 0.5 MG/ 2 ML VIALS 2 ML
     Dates: start: 20190613
  54. METFORMIN [Concomitant]
     Active Substance: METFORMIN HYDROCHLORIDE
     Route: 048
     Dates: start: 20190711
  55. INCRUSE ELLIPTA [Concomitant]
     Active Substance: UMECLIDINIUM BROMIDE
  56. PHENAZOPYRIDINE. [Concomitant]
     Active Substance: PHENAZOPYRIDINE
  57. METHYLPREDNISOLONE. [Concomitant]
     Active Substance: METHYLPREDNISOLONE
  58. PRILOSEC [Suspect]
     Active Substance: OMEPRAZOLE MAGNESIUM
     Indication: GASTROOESOPHAGEAL REFLUX DISEASE
     Dosage: GENERIC20.0MG UNKNOWN
     Route: 065
     Dates: start: 201704, end: 201803
  59. ATORVASTATIN [Concomitant]
     Active Substance: ATORVASTATIN
     Route: 048
     Dates: start: 20180717
  60. TAMSULOSIN [Concomitant]
     Active Substance: TAMSULOSIN
     Route: 048
     Dates: start: 20190711
  61. DOXYCYCLINE HYCLATE. [Concomitant]
     Active Substance: DOXYCYCLINE HYCLATE
     Route: 048
     Dates: start: 20191203
  62. CIPROFLOXACIN. [Concomitant]
     Active Substance: CIPROFLOXACIN
  63. AUGMENTIN [Concomitant]
     Active Substance: AMOXICILLIN\CLAVULANATE POTASSIUM
  64. FUROSEMIDE. [Concomitant]
     Active Substance: FUROSEMIDE
     Route: 048
     Dates: start: 20180717
  65. HYDROCODONE/ACETAMINOPHEN [Concomitant]
     Active Substance: ACETAMINOPHEN\HYDROCODONE
     Dosage: 5?325 MG DAILY
     Route: 048
     Dates: start: 20190329
  66. AMIODARONE [Concomitant]
     Active Substance: AMIODARONE
     Route: 048
     Dates: start: 20190808
  67. DOCUSATE SODIUM. [Concomitant]
     Active Substance: DOCUSATE SODIUM
  68. MAALOX ANTACID [Concomitant]
     Active Substance: ALUMINUM HYDROXIDE\DIMETHICONE\MAGNESIUM HYDROXIDE
  69. FLONASE [Concomitant]
     Active Substance: FLUTICASONE PROPIONATE
  70. ROLAIDS [Concomitant]
     Active Substance: CALCIUM CARBONATE\MAGNESIUM HYDROXIDE
  71. LISINOPRIL. [Concomitant]
     Active Substance: LISINOPRIL
     Route: 048
     Dates: start: 20180717
  72. PERFOROMIST [Concomitant]
     Active Substance: FORMOTEROL FUMARATE DIHYDRATE
     Dosage: 1 VAIL VIA NEBULIZER TWICE DAILY
     Dates: start: 20190614
  73. FLECAINIDE [Concomitant]
     Active Substance: FLECAINIDE
     Route: 048
     Dates: start: 20190712
  74. CYCLOBENZAPRINE. [Concomitant]
     Active Substance: CYCLOBENZAPRINE
     Route: 048
     Dates: start: 20191219
  75. VITAMIN D [Concomitant]
     Active Substance: VITAMIN D NOS
  76. FAMOTIDINE. [Concomitant]
     Active Substance: FAMOTIDINE
  77. AMBIEN [Concomitant]
     Active Substance: ZOLPIDEM TARTRATE
  78. GLIPIZIDE. [Concomitant]
     Active Substance: GLIPIZIDE
  79. TUMS [Concomitant]
     Active Substance: CALCIUM CARBONATE

REACTIONS (4)
  - Anxiety [Unknown]
  - Depression [Unknown]
  - Oesophageal adenocarcinoma [Not Recovered/Not Resolved]
  - Gastric cancer [Unknown]

NARRATIVE: CASE EVENT DATE: 20190321
